FAERS Safety Report 16645359 (Version 3)
Quarter: 2019Q3

REPORT INFORMATION
  Report Type: Report from Study
  Country: IL (occurrence: IL)
  Receive Date: 20190729
  Receipt Date: 20190904
  Transmission Date: 20191004
  Serious: Yes (Death, Hospitalization, Other)
  Sender: FDA-Public Use
  Company Number: IL-GILEAD-2019-0420593

PATIENT
  Age: 86 Year
  Sex: Female
  Weight: 51 kg

DRUGS (1)
  1. IDELALISIB [Suspect]
     Active Substance: IDELALISIB
     Indication: CHRONIC LYMPHOCYTIC LEUKAEMIA
     Route: 065

REACTIONS (3)
  - Pneumonia [Fatal]
  - Femur fracture [Recovered/Resolved]
  - Tracheal stenosis [Recovered/Resolved]

NARRATIVE: CASE EVENT DATE: 20190508
